FAERS Safety Report 7364468-3 (Version None)
Quarter: 2011Q1

REPORT INFORMATION
  Report Type: 
  Country: None (occurrence: None)
  Receive Date: 20110315
  Receipt Date: 20110315
  Transmission Date: 20110831
  Serious: Yes (Death)
  Sender: FDA-Public Use
  Company Number: None

PATIENT
  Age: 57 Year
  Sex: Female
  Weight: 51 kg

DRUGS (2)
  1. HEPARIN [Suspect]
     Indication: DEEP VEIN THROMBOSIS
     Dosage: 500-2500 UNITS/HR TITRATE IV DRIP
     Route: 041
     Dates: start: 20100609, end: 20100827
  2. HEPARIN [Suspect]
     Indication: PULMONARY EMBOLISM
     Dosage: 500-2500 UNITS/HR TITRATE IV DRIP
     Route: 041
     Dates: start: 20100609, end: 20100827

REACTIONS (14)
  - ABDOMINAL ABSCESS [None]
  - PULSELESS ELECTRICAL ACTIVITY [None]
  - AREFLEXIA [None]
  - HAEMORRHAGE [None]
  - TACHYPNOEA [None]
  - TACHYCARDIA [None]
  - HYPOTENSION [None]
  - APNOEA [None]
  - CANDIDIASIS [None]
  - LOSS OF CONSCIOUSNESS [None]
  - HYPOXIC-ISCHAEMIC ENCEPHALOPATHY [None]
  - CONVULSION [None]
  - TACHYARRHYTHMIA [None]
  - UNRESPONSIVE TO STIMULI [None]
